FAERS Safety Report 9938435 (Version 2)
Quarter: 2014Q1

REPORT INFORMATION
  Report Type: Report from Study
  Country: US (occurrence: US)
  Receive Date: 20140303
  Receipt Date: 20140303
  Transmission Date: 20141002
  Serious: Yes (Hospitalization, Other)
  Sender: FDA-Public Use
  Company Number: US-ABBVIE-12P-163-0996772-00

PATIENT
  Age: 64 Year
  Sex: Female
  Weight: 69.46 kg

DRUGS (3)
  1. HUMIRA [Suspect]
     Indication: RHEUMATOID ARTHRITIS
     Dates: start: 200705, end: 201209
  2. HUMIRA [Suspect]
     Dates: start: 201210
  3. MTX [Concomitant]
     Indication: PRODUCT USED FOR UNKNOWN INDICATION
     Route: 058

REACTIONS (2)
  - Diverticulitis [Recovered/Resolved]
  - Abdominal abscess [Unknown]
